FAERS Safety Report 15668979 (Version 1)
Quarter: 2018Q4

REPORT INFORMATION
  Report Type: Spontaneous
  Country: TW (occurrence: TW)
  Receive Date: 20181129
  Receipt Date: 20181129
  Transmission Date: 20190205
  Serious: Yes (Hospitalization)
  Sender: FDA-Public Use
  Company Number: TW-SUN PHARMACEUTICAL INDUSTRIES LTD-2018R1-192225

PATIENT
  Age: 41 Year
  Sex: Male

DRUGS (1)
  1. CLOZAPINE. [Suspect]
     Active Substance: CLOZAPINE
     Indication: SCHIZOAFFECTIVE DISORDER
     Dosage: UNK
     Route: 065

REACTIONS (5)
  - Pulmonary embolism [Recovered/Resolved]
  - Cardiac arrest [Recovered/Resolved]
  - Hallucination, auditory [Recovered/Resolved]
  - Catatonia [Recovered/Resolved]
  - Agitation [Recovered/Resolved]
